FAERS Safety Report 6718714-7 (Version None)
Quarter: 2010Q2

REPORT INFORMATION
  Report Type: 
  Country: None (occurrence: None)
  Receive Date: 20100505
  Receipt Date: 20100427
  Transmission Date: 20101027
  Serious: Yes (Death)
  Sender: FDA-Public Use
  Company Number: B0650391A

PATIENT
  Sex: 0

DRUGS (1)
  1. ALBENZA [Suspect]
     Indication: COLORECTAL CANCER
     Dosage: 1200 MG / TWICE PER DAY / ORAL
     Route: 048

REACTIONS (3)
  - BONE MARROW FAILURE [None]
  - DRUG TOXICITY [None]
  - NEUTROPENIC SEPSIS [None]
